FAERS Safety Report 13011899 (Version 1)
Quarter: 2016Q4

REPORT INFORMATION
  Report Type: Spontaneous
  Country: US (occurrence: US)
  Receive Date: 20161209
  Receipt Date: 20161209
  Transmission Date: 20170207
  Serious: Yes (Hospitalization)
  Sender: FDA-Public Use
  Company Number: US-ACCORD-040225

PATIENT
  Age: 27 Year
  Sex: Male

DRUGS (6)
  1. DEXMEDETOMIDINE/DEXMEDETOMIDINE HYDROCHLORIDE [Concomitant]
     Dosage: 1.5 MCG/KG PER MINUTE FOR 18 HOURS
  2. HALOPERIDOL. [Suspect]
     Active Substance: HALOPERIDOL
     Indication: DELIRIUM
     Route: 042
  3. FENTANYL. [Concomitant]
     Active Substance: FENTANYL
  4. PROPOFOL. [Concomitant]
     Active Substance: PROPOFOL
  5. QUETIAPINE. [Suspect]
     Active Substance: QUETIAPINE
     Indication: DELIRIUM
     Dosage: RESTARTED QUETIAPINE MONOTHERAPY ON DAY 15 AT A DOSE OF 100 MG EVERY 8 HOURS
  6. LORAZEPAM. [Concomitant]
     Active Substance: LORAZEPAM
     Route: 042

REACTIONS (1)
  - Inappropriate antidiuretic hormone secretion [Recovered/Resolved]
